FAERS Safety Report 8581432-7 (Version None)
Quarter: 2012Q3

REPORT INFORMATION
  Report Type: 
  Country: None (occurrence: None)
  Receive Date: 20120809
  Receipt Date: 20120801
  Transmission Date: 20120928
  Serious: Yes (Hospitalization, Other)
  Sender: FDA-Public Use
  Company Number: DE-BRISTOL-MYERS SQUIBB COMPANY-16655888

PATIENT
  Age: 64 Year
  Sex: Female
  Weight: 97 kg

DRUGS (7)
  1. IRINOTECAN HCL [Suspect]
     Indication: COLORECTAL CANCER METASTATIC
     Dosage: 15 DAYS,LAST DOSE ON 25APR2012 INTERRUPTED FROM 08MAY-21MAY12
     Route: 042
     Dates: start: 20120305
  2. HYDROCHLOROTHIAZIDE [Concomitant]
     Route: 048
  3. LEUCOVORIN CALCIUM [Suspect]
     Indication: COLORECTAL CANCER METASTATIC
     Dosage: 15 DAYS INTERRUPTED FROM 08MAY-21MAY12
     Route: 042
     Dates: start: 20120305
  4. CETUXIMAB [Suspect]
     Indication: COLORECTAL CANCER METASTATIC
     Dosage: 15DAYS, LAST DOSE ON 02MAY2012 INTERRUPTED FROM 08MAY-21MAY12
     Route: 042
     Dates: start: 20120305
  5. FLUOROURACIL [Suspect]
     Indication: COLORECTAL CANCER METASTATIC
     Dosage: 15 DAYS INTERRUPTED FROM 08MAY-21MAY12
     Route: 042
     Dates: start: 20120305
  6. OLMESARTAN MEDOXOMIL AND HYDROCHLOROTHIZIDE [Concomitant]
  7. OPIUM TINCTURE [Concomitant]
     Dates: start: 20120418

REACTIONS (1)
  - BLOOD CREATININE INCREASED [None]
